FAERS Safety Report 7736157-4 (Version None)
Quarter: 2011Q3

REPORT INFORMATION
  Report Type: 
  Country: None (occurrence: None)
  Receive Date: 20110908
  Receipt Date: 20110826
  Transmission Date: 20111222
  Serious: Yes (Other)
  Sender: FDA-Public Use
  Company Number: NO-UCBSA-040230

PATIENT
  Sex: Male

DRUGS (2)
  1. VIMPAT [Suspect]
     Indication: EPILEPSY
     Route: 048
     Dates: start: 20090701
  2. KEPPRA [Suspect]
     Indication: EPILEPSY
     Dosage: 1000 VS 1500 MG
     Route: 048
     Dates: start: 20070101

REACTIONS (4)
  - SEDATION [None]
  - BRADYKINESIA [None]
  - CONVULSION [None]
  - FREEZING PHENOMENON [None]
